FAERS Safety Report 10917137 (Version 1)
Quarter: 2015Q1

REPORT INFORMATION
  Report Type: Spontaneous
  Country: US (occurrence: None)
  Receive Date: 20150312
  Receipt Date: 20150312
  Transmission Date: 20150721
  Serious: Yes (Hospitalization, Other)
  Sender: FDA-Public Use
  Company Number: None

PATIENT
  Age: 65 Year
  Sex: Male
  Weight: 96.16 kg

DRUGS (1)
  1. METOPROLOL TARTRATE. [Suspect]
     Active Substance: METOPROLOL TARTRATE
     Indication: HYPERTENSION
     Dosage: 1 PILL
     Route: 048
     Dates: start: 20150104, end: 20150221

REACTIONS (5)
  - Loss of consciousness [None]
  - Periorbital contusion [None]
  - Laceration [None]
  - Head injury [None]
  - Heart rate decreased [None]

NARRATIVE: CASE EVENT DATE: 20150220
